FAERS Safety Report 10543442 (Version 4)
Quarter: 2015Q2

REPORT INFORMATION
  Report Type: Report from Study
  Country: US (occurrence: US)
  Receive Date: 20141027
  Receipt Date: 20150603
  Transmission Date: 20150821
  Serious: Yes (Hospitalization, Other)
  Sender: FDA-Public Use
  Company Number: US-CELGENE-163-21880-12053588

PATIENT
  Age: 85 Year
  Sex: Male
  Weight: 65.38 kg

DRUGS (2)
  1. REVLIMID [Suspect]
     Active Substance: LENALIDOMIDE
     Indication: PLASMA CELL MYELOMA
     Dosage: 25 MILLIGRAM
     Route: 048
     Dates: start: 20110811, end: 20120218
  2. DECADRON [Suspect]
     Active Substance: DEXAMETHASONE
     Indication: PRODUCT USED FOR UNKNOWN INDICATION
     Dosage: 40 MILLIGRAM
     Route: 048
     Dates: start: 20110811, end: 20120211

REACTIONS (7)
  - Diarrhoea [Unknown]
  - Constipation [Unknown]
  - Deep vein thrombosis [Unknown]
  - Pancytopenia [Unknown]
  - Hypotension [Unknown]
  - Dementia [Unknown]
  - Haematochezia [Unknown]

NARRATIVE: CASE EVENT DATE: 20120211
